FAERS Safety Report 15200786 (Version 1)
Quarter: 2018Q3

REPORT INFORMATION
  Report Type: Spontaneous
  Country: GB (occurrence: GB)
  Receive Date: 20180726
  Receipt Date: 20180726
  Transmission Date: 20181010
  Serious: Yes (Hospitalization)
  Sender: FDA-Public Use
  Company Number: GB-TEVA-2018-GB-931112

PATIENT
  Age: 81 Year
  Sex: Male

DRUGS (4)
  1. WARFARIN [Suspect]
     Active Substance: WARFARIN
     Dosage: 1MG + 5MG TABLETS. TAKE AS PRESCRIBED IN ANTICOAGULANT TREATMENT BOOK
  2. WARFARIN [Suspect]
     Active Substance: WARFARIN
     Dosage: 1MG + 5MG TABLETS. TAKE AS PRESCRIBED IN ANTICOAGULANT TREATMENT BOOK
  3. BISOPROLOL [Concomitant]
     Active Substance: BISOPROLOL
     Dosage: 1.25 MILLIGRAM DAILY;
  4. SIMVASTATIN. [Concomitant]
     Active Substance: SIMVASTATIN
     Dosage: 40 MILLIGRAM DAILY; AT NIGHT

REACTIONS (1)
  - Haematuria [Recovered/Resolved]
